FAERS Safety Report 4281209-7 (Version None)
Quarter: 2004Q1

REPORT INFORMATION
  Report Type: 
  Country: None (occurrence: None)
  Receive Date: 20040127
  Receipt Date: 20040114
  Transmission Date: 20041129
  Serious: Yes (Other)
  Sender: FDA-Public Use
  Company Number: US-JNJFOC-20031005359

PATIENT
  Age: 23 Year
  Sex: Female
  Weight: 70.7611 kg

DRUGS (12)
  1. REMICADE [Suspect]
     Indication: COLITIS ULCERATIVE
     Dosage: SEE IMAGE
     Route: 042
     Dates: start: 20030904, end: 20031006
  2. REMICADE [Suspect]
     Indication: CROHN'S DISEASE
     Dosage: SEE IMAGE
     Route: 042
     Dates: start: 20030904, end: 20031006
  3. REMICADE [Suspect]
     Indication: COLITIS ULCERATIVE
     Dosage: SEE IMAGE
     Route: 042
     Dates: start: 20010101
  4. REMICADE [Suspect]
     Indication: CROHN'S DISEASE
     Dosage: SEE IMAGE
     Route: 042
     Dates: start: 20010101
  5. REMICADE [Suspect]
     Indication: COLITIS ULCERATIVE
     Dosage: SEE IMAGE
     Route: 042
     Dates: start: 20020101
  6. REMICADE [Suspect]
     Indication: CROHN'S DISEASE
     Dosage: SEE IMAGE
     Route: 042
     Dates: start: 20020101
  7. PROZAC [Concomitant]
  8. ACIPHEX [Concomitant]
  9. MERCAPTOPURINE [Concomitant]
  10. FLAGYL [Concomitant]
  11. TYLENOL [Concomitant]
  12. LO OVRAL (EUGYNON) [Concomitant]

REACTIONS (10)
  - CROHN'S DISEASE [None]
  - DIZZINESS [None]
  - FEELING ABNORMAL [None]
  - FEMALE GENITAL-DIGESTIVE TRACT FISTULA [None]
  - FLUSHING [None]
  - HYPERSENSITIVITY [None]
  - INFUSION RELATED REACTION [None]
  - NAUSEA [None]
  - POUCHITIS [None]
  - VOMITING [None]
